FAERS Safety Report 6679624 (Version 12)
Quarter: 2013Q1

REPORT INFORMATION
  Report Type: Spontaneous
  Country: US (occurrence: US)
  Receive Date: 20080624
  Receipt Date: 20130125
  Transmission Date: 20140127
  Serious: Yes (Hospitalization, Congenital Anomaly, Other)
  Sender: FDA-Public Use
  Company Number: US-PFIZER INC-2008049848

PATIENT
  Sex: Male
  Weight: 3.5 kg

DRUGS (6)
  1. ZOLOFT [Suspect]
     Indication: ANXIETY
     Dosage: 100 MG, 1X/DAY
     Route: 064
     Dates: start: 2000
  2. ZOLOFT [Suspect]
     Dosage: 100 MG, UNK
     Route: 064
     Dates: start: 2004
  3. ZOLOFT [Suspect]
     Indication: ANXIETY
     Dosage: 150 MG, UNK
     Route: 064
     Dates: start: 20031111
  4. ZOLOFT [Suspect]
     Dosage: 100 MG, AT BED TIME
     Route: 064
     Dates: start: 20041201, end: 20070509
  5. ZOLOFT [Suspect]
     Dosage: 75 MG, AT BED TIME
     Route: 064
     Dates: start: 20070606
  6. SERTRALINE HCL [Suspect]
     Indication: ANXIETY
     Dosage: 100 MG, UNK
     Route: 064
     Dates: start: 20060914

REACTIONS (12)
  - Foetal exposure during pregnancy [Recovering/Resolving]
  - Patent ductus arteriosus [Unknown]
  - Pulmonary valve stenosis [Recovering/Resolving]
  - Cardiac murmur [Recovering/Resolving]
  - Asthma [Not Recovered/Not Resolved]
  - Atrial septal defect [Unknown]
  - Respiratory syncytial virus bronchiolitis [Unknown]
  - Otitis media [Unknown]
  - Pneumonia [Unknown]
  - Bronchitis [Unknown]
  - Nasopharyngitis [Unknown]
  - Congenital anomaly [Unknown]
